FAERS Safety Report 11863874 (Version 2)
Quarter: 2016Q1

REPORT INFORMATION
  Report Type: Spontaneous
  Country: FR (occurrence: FR)
  Receive Date: 20151223
  Receipt Date: 20160226
  Transmission Date: 20160526
  Serious: Yes (Hospitalization)
  Sender: FDA-Public Use
  Company Number: FR-PFIZER INC-2015451692

PATIENT
  Age: 34 Year
  Sex: Female

DRUGS (6)
  1. BOSWELLIA SERRATA EXTRACT [Suspect]
     Active Substance: INDIAN FRANKINCENSE
     Indication: HEADACHE
     Dosage: UNK
  2. SALIX ALBA [Suspect]
     Active Substance: SALIX ALBA (WILLOW) BARK EXTRACT
     Indication: HEADACHE
     Dosage: UNK
     Dates: start: 201510, end: 201510
  3. HARPAGOPHYTUM PROCUMBENS [Suspect]
     Active Substance: HARPAGOPHYTUM PROCUMBENS ROOT
     Indication: HEADACHE
     Dosage: UNK
     Dates: start: 201510, end: 201510
  4. CURCUMA LONGA [Suspect]
     Active Substance: TURMERIC
     Indication: HEADACHE
     Dosage: UNK
     Dates: start: 201510, end: 201510
  5. ADVIL [Suspect]
     Active Substance: IBUPROFEN
     Dosage: UNK
     Dates: start: 201510, end: 201510
  6. ZINGIBER OFFICINALE [Suspect]
     Active Substance: GINGER
     Indication: HEADACHE
     Dosage: UNK
     Dates: start: 201510, end: 201510

REACTIONS (1)
  - Stevens-Johnson syndrome [Recovered/Resolved]

NARRATIVE: CASE EVENT DATE: 20151116
